FAERS Safety Report 9563004 (Version 2)
Quarter: 2013Q4

REPORT INFORMATION
  Report Type: Spontaneous
  Country: CA (occurrence: CA)
  Receive Date: 20130927
  Receipt Date: 20131007
  Transmission Date: 20140711
  Serious: Yes (Hospitalization, Other)
  Sender: FDA-Public Use
  Company Number: PHHY2013CA107105

PATIENT
  Age: 68 Year
  Sex: Male
  Weight: 80 kg

DRUGS (9)
  1. METFORMIN [Suspect]
     Dosage: 7 TABLETS, (500MG)
  2. AMLODIPINE [Suspect]
     Dosage: 30 DF, (10MG)
  3. ETHANOL [Suspect]
  4. ACETYLSALICYLIC ACID [Concomitant]
     Dosage: UNK UKN, UNK
  5. GLYBURIDE [Concomitant]
     Dosage: UNK UKN, UNK
  6. IRBESARTAN [Concomitant]
     Dosage: UNK UKN, UNK
  7. VITAMIN B12 [Concomitant]
  8. TAMSULOSIN [Concomitant]
     Dosage: UNK UKN, UNK
  9. CLONAZEPAM [Concomitant]
     Dosage: UNK UKN, UNK

REACTIONS (13)
  - Suicide attempt [Recovering/Resolving]
  - Blood creatine phosphokinase increased [Unknown]
  - Hyperglycaemia [Unknown]
  - Shock [Unknown]
  - Oliguria [Unknown]
  - Haemodynamic instability [Recovering/Resolving]
  - Pallor [Unknown]
  - Hyperhidrosis [Unknown]
  - Metabolic acidosis [Recovering/Resolving]
  - Blood lactic acid increased [Unknown]
  - Anion gap increased [Unknown]
  - Hypotension [Recovering/Resolving]
  - Overdose [Recovering/Resolving]
